FAERS Safety Report 13365361 (Version 1)
Quarter: 2017Q1

REPORT INFORMATION
  Report Type: Spontaneous
  Country: US (occurrence: US)
  Receive Date: 20170323
  Receipt Date: 20170323
  Transmission Date: 20170429
  Serious: Yes (Other)
  Sender: FDA-Public Use
  Company Number: US-WARNER CHILCOTT-11-000514

PATIENT
  Age: 84 Year
  Sex: Female
  Weight: 78.91 kg

DRUGS (14)
  1. PRESERVISION LUTEIN EYE VITA.+MIN.SUP.SOFTG. [Concomitant]
     Dosage: UNK
  2. METFORMIN [Concomitant]
     Active Substance: METFORMIN HYDROCHLORIDE
     Indication: DIABETES MELLITUS
     Dosage: UNK
  3. ESTRACE [Suspect]
     Active Substance: ESTRADIOL
     Indication: MEDICAL DEVICE REMOVAL
     Dosage: UNKNOWN
     Route: 061
  4. ESTRACE [Suspect]
     Active Substance: ESTRADIOL
     Indication: ANORECTAL DISCOMFORT
  5. DICLOFENAC SODIUM. [Concomitant]
     Active Substance: DICLOFENAC SODIUM
     Indication: RASH
     Dosage: UNK
  6. ESTRACE [Suspect]
     Active Substance: ESTRADIOL
     Indication: VULVOVAGINAL DISCOMFORT
     Dosage: 1 G, AT HOUR OF SLEEP
     Route: 067
     Dates: start: 20110502
  7. ESTRACE [Suspect]
     Active Substance: ESTRADIOL
     Indication: SKIN IRRITATION
     Dosage: UNK 1 DOSE UNK.
     Route: 067
     Dates: start: 2003, end: 2003
  8. METROGEL [Concomitant]
     Active Substance: METRONIDAZOLE
     Indication: ROSACEA
     Dosage: UNK
  9. GLIPIZIDE. [Concomitant]
     Active Substance: GLIPIZIDE
     Indication: DIABETES MELLITUS
     Dosage: UNK
  10. LOVASTATIN. [Concomitant]
     Active Substance: LOVASTATIN
     Dosage: UNK
  11. VITAMIN D [Concomitant]
     Active Substance: CHOLECALCIFEROL
     Dosage: UNK
  12. LYSINE [Concomitant]
     Active Substance: LYSINE
     Dosage: UNK
  13. COQ10 [Concomitant]
     Active Substance: UBIDECARENONE
     Dosage: UNK
  14. DIURETICS [Concomitant]
     Active Substance: UNSPECIFIED INGREDIENT
     Dosage: UNK

REACTIONS (6)
  - Expired product administered [Unknown]
  - Vaginal haemorrhage [Recovered/Resolved]
  - Breast cancer [Unknown]
  - Medication error [Recovered/Resolved]
  - Product use issue [Unknown]
  - Skin cancer [Unknown]

NARRATIVE: CASE EVENT DATE: 2005
